FAERS Safety Report 9536381 (Version 1)
Quarter: 2013Q2

REPORT INFORMATION
  Report Type: Spontaneous
  Country: US (occurrence: None)
  Receive Date: 20130429
  Receipt Date: 20130429
  Transmission Date: 20140414
  Serious: Yes (Hospitalization)
  Sender: FDA-Public Use
  Company Number: PIR#CC400153927

PATIENT
  Age: 58 Year
  Sex: 0
  Weight: 149 kg

DRUGS (1)
  1. SODIUM CHLORIDE [Suspect]

REACTIONS (1)
  - Product deposit [None]
